FAERS Safety Report 9095857 (Version 2)
Quarter: 2013Q3

REPORT INFORMATION
  Report Type: Report from Study
  Country: GB (occurrence: GB)
  Receive Date: 20130219
  Receipt Date: 20130812
  Transmission Date: 20140515
  Serious: Yes (Hospitalization)
  Sender: FDA-Public Use
  Company Number: GB-MERCK-1302GBR004656

PATIENT
  Age: 59 Year
  Sex: Female
  Weight: 40.8 kg

DRUGS (12)
  1. VORINOSTAT [Suspect]
     Indication: MYELOID LEUKAEMIA
     Dosage: 300.0 MG, BID
     Route: 048
     Dates: start: 20130123, end: 20130129
  2. VORINOSTAT [Suspect]
     Dosage: 300 MG, BID
     Route: 048
     Dates: start: 20121114, end: 20121120
  3. VORINOSTAT [Suspect]
     Dosage: 300 MG, BID
     Route: 048
     Dates: start: 20121213, end: 20121219
  4. 5-AZACYTIDINE [Suspect]
     Indication: MYELOID LEUKAEMIA
     Dosage: 37.5 MG/M2, QD
     Route: 058
     Dates: start: 20121112, end: 20121120
  5. 5-AZACYTIDINE [Suspect]
     Dosage: 115.0 MG/M2, QD
     Route: 058
     Dates: start: 20121211, end: 20121219
  6. 5-AZACYTIDINE [Suspect]
     Dosage: 105.0 MG QD
     Route: 058
     Dates: start: 20130121, end: 20130129
  7. OXYCODONE [Concomitant]
     Indication: PAIN
     Dosage: 5 MG, BID
     Route: 048
     Dates: end: 20130201
  8. RAMIPRIL [Concomitant]
     Indication: HYPERTENSION
     Dosage: 2.5 MG, BID
     Route: 048
     Dates: start: 2012, end: 20130201
  9. BISOPROLOL [Concomitant]
     Indication: HYPERTENSION
     Dosage: 1.25 MG, QD
     Route: 048
     Dates: start: 2012, end: 20130201
  10. MIRTAZAPINE [Concomitant]
     Indication: DEPRESSION
     Dosage: 15 MG, QD
     Route: 048
     Dates: start: 2012, end: 20130131
  11. RANITIDINE [Concomitant]
     Indication: PROPHYLAXIS
     Dosage: 150 MG, BID
     Route: 048
     Dates: start: 2012, end: 20130201
  12. SPIRONOLACTONE [Concomitant]
     Indication: HYPERTENSION
     Dosage: 12.5 MG, QD
     Route: 048
     Dates: start: 2012, end: 20130201

REACTIONS (5)
  - Hyponatraemia [Recovered/Resolved]
  - Decreased appetite [Not Recovered/Not Resolved]
  - Vomiting [Recovered/Resolved]
  - Pain in extremity [Recovered/Resolved]
  - Oral candidiasis [Recovered/Resolved]
